FAERS Safety Report 4591502-6 (Version None)
Quarter: 2005Q1

REPORT INFORMATION
  Report Type: 
  Country: None (occurrence: None)
  Receive Date: 20050222
  Receipt Date: 20050207
  Transmission Date: 20050727
  Serious: Yes (Other)
  Sender: FDA-Public Use
  Company Number: 2005027549

PATIENT
  Age: 84 Year
  Sex: Female
  Weight: 61.2356 kg

DRUGS (7)
  1. CELEBREX [Suspect]
     Indication: ARTHRITIS
     Dosage: 400 MG (200 MG,2 IN 1 D),ORAL
     Route: 048
     Dates: end: 20050101
  2. LEVOTHYROXINE SODIUM [Concomitant]
  3. FUROSEMIDE [Concomitant]
  4. ASPIRIN [Concomitant]
  5. LANSOPRAZOLE [Concomitant]
  6. POTASSIUM (POTASSIUM) [Concomitant]
  7. DILTIAZEM HYDROCHLORIDE [Concomitant]

REACTIONS (3)
  - ARTHRALGIA [None]
  - CARDIAC DISORDER [None]
  - JOINT SWELLING [None]
